FAERS Safety Report 24010432 (Version 2)
Quarter: 2024Q3

REPORT INFORMATION
  Report Type: Spontaneous
  Country: US (occurrence: US)
  Receive Date: 20240625
  Receipt Date: 20240805
  Transmission Date: 20241016
  Serious: No
  Sender: PFIZER
  Company Number: US-PFIZER INC-202400197633

PATIENT
  Age: 48 Year
  Sex: Female
  Weight: 105.23 kg

DRUGS (13)
  1. PAXLOVID [Suspect]
     Active Substance: NIRMATRELVIR\RITONAVIR
     Indication: COVID-19 treatment
     Dosage: [NIRMATRELVIR 300 MG]/[RITONAVIR 100 MG]; 2X/DAY
     Route: 048
     Dates: start: 20240618
  2. PAXLOVID [Suspect]
     Active Substance: NIRMATRELVIR\RITONAVIR
     Dosage: [NIRMATRELVIR 150 MG]/[RITONAVIR 100 MG]
     Dates: end: 20240619
  3. ASPIRIN [Concomitant]
     Active Substance: ASPIRIN
     Dosage: 81 MG, 1X/DAY
     Route: 048
     Dates: start: 20240615
  4. VITAMINS [Concomitant]
     Active Substance: VITAMINS
     Dosage: UNK
  5. ESTROGEL [Concomitant]
     Active Substance: ESTRADIOL
     Dosage: UNK, 1X/DAY
     Route: 061
  6. ESTROGENS [Concomitant]
     Active Substance: ESTROGENS
     Dosage: UNK
  7. CLARITIN-D NOS [Concomitant]
     Active Substance: LORATADINE\PSEUDOEPHEDRINE SULFATE
     Indication: COVID-19
     Dosage: 120/5 MG 2X/DAY AS NEEDED
     Route: 048
     Dates: start: 20240616
  8. CLARITIN-D NOS [Concomitant]
     Active Substance: LORATADINE\PSEUDOEPHEDRINE SULFATE
     Indication: Nasal congestion
  9. BENADRYL [Concomitant]
     Active Substance: DIPHENHYDRAMINE HYDROCHLORIDE
     Indication: Nasal congestion
     Dosage: 25 MG, 2X/DAY (AS NEEDED)
  10. TYLENOL [Concomitant]
     Active Substance: ACETAMINOPHEN
     Indication: Pain
     Dosage: 1000 MG, 4X/DAY (AS NEEDED)
  11. TYLENOL [Concomitant]
     Active Substance: ACETAMINOPHEN
     Indication: Body temperature increased
  12. IBUPROFEN [Concomitant]
     Active Substance: IBUPROFEN
     Indication: Pain
     Dosage: 400 MG, 4X/DAY (AS NEEDED)
  13. MIRENA [Concomitant]
     Active Substance: LEVONORGESTREL
     Dosage: UNK

REACTIONS (14)
  - Glossodynia [Recovering/Resolving]
  - Oral pain [Recovering/Resolving]
  - Paraesthesia oral [Recovering/Resolving]
  - Tongue discomfort [Recovering/Resolving]
  - Skin tightness [Unknown]
  - Sunburn [Recovering/Resolving]
  - Pain of skin [Recovering/Resolving]
  - Vaginal haemorrhage [Unknown]
  - Vulvovaginal pain [Unknown]
  - Vulvovaginal burning sensation [Unknown]
  - Skin exfoliation [Recovered/Resolved]
  - Pain in extremity [Recovered/Resolved]
  - Vulvovaginal discomfort [Unknown]
  - Intentional product use issue [Unknown]

NARRATIVE: CASE EVENT DATE: 20240619
